FAERS Safety Report 15309939 (Version 5)
Quarter: 2018Q4

REPORT INFORMATION
  Report Type: Spontaneous
  Country: DE (occurrence: DE)
  Receive Date: 20180823
  Receipt Date: 20181023
  Transmission Date: 20190204
  Serious: Yes (Life-Threatening, Hospitalization, Other)
  Sender: FDA-Public Use
  Company Number: DE-AUROBINDO-AUR-APL-2018-043162

PATIENT
  Sex: Female

DRUGS (1)
  1. AMIODARONE [Suspect]
     Active Substance: AMIODARONE
     Indication: PRODUCT USED FOR UNKNOWN INDICATION
     Dosage: 200 MILLIGRAM, ONCE A DAY, UNK UNK, HS
     Route: 065
     Dates: start: 20170503

REACTIONS (9)
  - Fall [Unknown]
  - Dizziness [Recovered/Resolved]
  - Femoral neck fracture [Recovered/Resolved]
  - Urinary tract infection [Recovered/Resolved]
  - Syncope [Recovered/Resolved]
  - Chronic kidney disease [Unknown]
  - Vertigo [Recovered/Resolved]
  - Sinus node dysfunction [Recovered/Resolved]
  - Acute kidney injury [Recovered/Resolved]

NARRATIVE: CASE EVENT DATE: 20180423
